FAERS Safety Report 9046965 (Version 1)
Quarter: 2013Q1

REPORT INFORMATION
  Report Type: Spontaneous
  Country: FR (occurrence: FR)
  Receive Date: 20130204
  Receipt Date: 20130204
  Transmission Date: 20140127
  Serious: Yes (Hospitalization, Other)
  Sender: FDA-Public Use
  Company Number: FR-ELI_LILLY_AND_COMPANY-FR201301008945

PATIENT
  Age: 63 None
  Sex: Female

DRUGS (2)
  1. PROZAC [Suspect]
     Dosage: UNK
     Dates: end: 20121114
  2. STILNOX [Concomitant]
     Dosage: UNK

REACTIONS (6)
  - Hyponatraemia [Recovered/Resolved]
  - Fall [Recovered/Resolved]
  - Spinal fracture [Unknown]
  - Dysarthria [Unknown]
  - Abdominal pain upper [Unknown]
  - Diarrhoea [Unknown]
